FAERS Safety Report 5339921-4 (Version None)
Quarter: 2007Q2

REPORT INFORMATION
  Report Type: 
  Country: None (occurrence: None)
  Receive Date: 20070531
  Receipt Date: 20070525
  Transmission Date: 20071010
  Serious: Yes (Other)
  Sender: FDA-Public Use
  Company Number: US-BAYER-200711121BCC

PATIENT
  Age: 40 Year
  Sex: Male
  Weight: 91 kg

DRUGS (5)
  1. ALKA SELTZER EFFERVESCENT TABLETS [Suspect]
     Indication: HANGOVER
     Dosage: TOTAL DAILY DOSE: 650 MG  UNIT DOSE: 325 MG
     Route: 048
     Dates: start: 20070415
  2. NICODERM [Suspect]
     Indication: DRUG USE FOR UNKNOWN INDICATION
     Route: 062
     Dates: start: 20070415
  3. CHEWING TABACCO [Suspect]
     Indication: DRUG USE FOR UNKNOWN INDICATION
  4. MULTIVITAMIN [Concomitant]
  5. ALCOHOL [Concomitant]
     Route: 048

REACTIONS (11)
  - ANXIETY [None]
  - CHEMICAL POISONING [None]
  - DEPRESSION [None]
  - DIZZINESS [None]
  - FATIGUE [None]
  - FEELING ABNORMAL [None]
  - HYPERTENSION [None]
  - HYPERTENSIVE EMERGENCY [None]
  - PAIN IN JAW [None]
  - PALLOR [None]
  - RESTLESSNESS [None]
